FAERS Safety Report 9248163 (Version 1)
Quarter: 2013Q1

REPORT INFORMATION
  Report Type: Spontaneous
  Country: US (occurrence: None)
  Receive Date: 20130305
  Receipt Date: 20130305
  Transmission Date: 20140127
  Serious: Yes (Hospitalization)
  Sender: FDA-Public Use
  Company Number: 163-21880-12060775

PATIENT
  Age: 66 Year
  Sex: Female

DRUGS (12)
  1. REVLIMID [Suspect]
     Indication: PLASMA CELL MYELOMA
     Dosage: 25 MG, QD X 21 D, PO
     Route: 048
     Dates: start: 200812, end: 2009
  2. COREG [Concomitant]
  3. LASIX (FUROSEMIDE) [Concomitant]
  4. PRILOSEC [Concomitant]
  5. FLEXERIL (CYCLOBENZAPRINE HYDROCHLORIDE) [Concomitant]
  6. FOLIC ACID (FOLIC ACID) [Concomitant]
  7. COUMADIN (WARFARIN SODIUM) [Concomitant]
  8. VELCADE (INJECTION) [Concomitant]
  9. OXYCODONE (OXYCODONE) [Concomitant]
  10. MICRO-K (POTASSIUM CHLORIDE) [Concomitant]
  11. NEURONTIN (GABAPENTIN) [Concomitant]
  12. ALLEGRA [Concomitant]

REACTIONS (3)
  - Renal failure [None]
  - Pneumonia [None]
  - Pneumonia [None]
